FAERS Safety Report 5390727-X (Version None)
Quarter: 2007Q3

REPORT INFORMATION
  Report Type: 
  Country: None (occurrence: None)
  Receive Date: 20070716
  Receipt Date: 20060222
  Transmission Date: 20080115
  Serious: No
  Sender: FDA-Public Use
  Company Number: MPS1-10497

PATIENT

DRUGS (1)
  1. ALDURAZYME [Suspect]
     Indication: MUCOPOLYSACCHARIDOSIS I
     Dosage: 100 UG/KG QWK IV
     Route: 042

REACTIONS (1)
  - CENTRAL LINE INFECTION [None]
